FAERS Safety Report 9907577 (Version 1)
Quarter: 2014Q1

REPORT INFORMATION
  Report Type: Spontaneous
  Country: FR (occurrence: FR)
  Receive Date: 20140218
  Receipt Date: 20140218
  Transmission Date: 20141002
  Serious: Yes (Life-Threatening, Hospitalization)
  Sender: FDA-Public Use
  Company Number: FR-PFIZER INC-2014044081

PATIENT
  Age: 22 Year
  Sex: Male

DRUGS (3)
  1. SOLU-MEDROL [Suspect]
     Dosage: 1 MG/KG, 1X/DAY
     Route: 042
     Dates: start: 20080605, end: 20080606
  2. PROFENID [Suspect]
     Indication: ANALGESIC THERAPY
     Dosage: 1 DF, 1X/DAY
     Route: 042
     Dates: start: 20080605, end: 20080606
  3. AUGMENTIN [Suspect]
     Indication: ANTIBIOTIC PROPHYLAXIS
     Dosage: UNK
     Route: 048
     Dates: start: 20080605, end: 20080608

REACTIONS (3)
  - Cellulitis [Recovered/Resolved with Sequelae]
  - Septic shock [Recovered/Resolved with Sequelae]
  - Pleurisy [Unknown]
